FAERS Safety Report 5112489-3 (Version None)
Quarter: 2006Q3

REPORT INFORMATION
  Report Type: 
  Country: None (occurrence: None)
  Receive Date: 20060922
  Receipt Date: 20060810
  Transmission Date: 20061208
  Serious: Yes (Other)
  Sender: FDA-Public Use
  Company Number: FR-BAYER-200610799BFR

PATIENT
  Age: 75 Year
  Sex: Female
  Weight: 56 kg

DRUGS (7)
  1. NEXAVAR [Suspect]
     Indication: METASTATIC RENAL CELL CARCINOMA
     Dosage: UNIT DOSE: 200 MG
     Route: 048
     Dates: start: 20060701, end: 20060829
  2. NEXAVAR [Suspect]
     Dosage: TOTAL DAILY DOSE: 800 MG  UNIT DOSE: 200 MG
     Route: 048
     Dates: start: 20060714, end: 20060701
  3. NEXAVAR [Suspect]
     Route: 048
     Dates: start: 20060901
  4. TRILEPTAL [Concomitant]
     Indication: METASTASES TO CENTRAL NERVOUS SYSTEM
     Route: 048
     Dates: start: 20050101
  5. MEDIATENSYL [Concomitant]
     Indication: HYPERTENSION
     Route: 048
     Dates: start: 20050101
  6. APROVEL [Concomitant]
     Indication: HYPERTENSION
     Route: 048
     Dates: start: 20050101
  7. LOXEN [Concomitant]
     Indication: HYPERTENSION
     Route: 065
     Dates: start: 20050101

REACTIONS (7)
  - ASTHENIA [None]
  - BLISTER [None]
  - DRUG ERUPTION [None]
  - ERYTHEMA MULTIFORME [None]
  - RASH [None]
  - RASH ERYTHEMATOUS [None]
  - RASH PRURITIC [None]
